FAERS Safety Report 8794833 (Version 2)
Quarter: 2015Q1

REPORT INFORMATION
  Report Type: Report from Study
  Country: US (occurrence: US)
  Receive Date: 20120917
  Receipt Date: 20150327
  Transmission Date: 20150721
  Serious: Yes (Death)
  Sender: FDA-Public Use
  Company Number: US-ROCHE-1128493

PATIENT
  Sex: Male

DRUGS (10)
  1. BORTEZOMIB [Concomitant]
     Active Substance: BORTEZOMIB
     Route: 042
     Dates: start: 20080403, end: 20080403
  2. BORTEZOMIB [Concomitant]
     Active Substance: BORTEZOMIB
     Route: 042
     Dates: start: 20080508, end: 20080508
  3. AVASTIN [Suspect]
     Active Substance: BEVACIZUMAB
     Indication: PLASMA CELL MYELOMA
     Route: 042
     Dates: start: 20080501, end: 20080501
  4. DEXAMETHASONE. [Concomitant]
     Active Substance: DEXAMETHASONE
     Route: 042
  5. AVASTIN [Suspect]
     Active Substance: BEVACIZUMAB
     Indication: PLASMA CELL MYELOMA
     Route: 042
     Dates: start: 20080403, end: 20080403
  6. BORTEZOMIB [Concomitant]
     Active Substance: BORTEZOMIB
     Route: 042
     Dates: start: 20080424, end: 20080424
  7. ZOMETA [Concomitant]
     Active Substance: ZOLEDRONIC ACID
     Route: 042
  8. ONDANSETRON HYDROCHLORIDE. [Concomitant]
     Active Substance: ONDANSETRON HYDROCHLORIDE
     Route: 042
     Dates: start: 20080508
  9. AVASTIN [Suspect]
     Active Substance: BEVACIZUMAB
     Indication: PLASMA CELL MYELOMA
     Route: 042
     Dates: start: 20080424, end: 20080424
  10. AVASTIN [Suspect]
     Active Substance: BEVACIZUMAB
     Route: 042
     Dates: start: 20080508, end: 20080508

REACTIONS (2)
  - Off label use [Unknown]
  - Death [Fatal]
